FAERS Safety Report 8533620-3 (Version None)
Quarter: 2012Q3

REPORT INFORMATION
  Report Type: 
  Country: None (occurrence: None)
  Receive Date: 20120724
  Receipt Date: 20120710
  Transmission Date: 20120928
  Serious: Yes (Life-Threatening, Hospitalization, Congenital Anomaly, Other)
  Sender: FDA-Public Use
  Company Number: DE-MYLANLABS-2012S1013939

PATIENT
  Age: 0 Year
  Sex: Female
  Weight: 3.5 kg

DRUGS (2)
  1. LAMOTRIGINE [Suspect]
     Dosage: 500 [MG/D ]/ PRECON AND THROUGHOUT PREGNANCY, DURING FIRST TRIMESTER 275MG/D
     Route: 064
     Dates: end: 20110212
  2. FOLIC ACID [Concomitant]
     Indication: PROPHYLAXIS OF NEURAL TUBE DEFECT
     Dosage: 5 [MG/D ]/ + PRECON
     Route: 064

REACTIONS (7)
  - NEONATAL RESPIRATORY DISTRESS SYNDROME [None]
  - MATERNAL EXPOSURE DURING PREGNANCY [None]
  - TALIPES [None]
  - ATRIAL SEPTAL DEFECT [None]
  - DYSMORPHISM [None]
  - CONGENITAL URETERIC ANOMALY [None]
  - BRADYCARDIA NEONATAL [None]
